FAERS Safety Report 11590901 (Version 3)
Quarter: 2016Q2

REPORT INFORMATION
  Report Type: Report from Study
  Country: GB (occurrence: GB)
  Receive Date: 20151002
  Receipt Date: 20160606
  Transmission Date: 20160815
  Serious: Yes (Death, Life-Threatening, Hospitalization, Disabling, Other)
  Sender: FDA-Public Use
  Company Number: GB-ABBVIE-15K-167-1472101-00

PATIENT
  Age: 56 Year
  Sex: Male
  Weight: 112.65 kg

DRUGS (1)
  1. HUMIRA [Suspect]
     Active Substance: ADALIMUMAB
     Indication: ANKYLOSING SPONDYLITIS
     Route: 058
     Dates: start: 20140509, end: 20150921

REACTIONS (2)
  - Oesophageal adenocarcinoma stage III [Fatal]
  - Barrett^s oesophagus [Unknown]

NARRATIVE: CASE EVENT DATE: 20150904
